FAERS Safety Report 12907335 (Version 2)
Quarter: 2019Q4

REPORT INFORMATION
  Report Type: Spontaneous
  Country: US (occurrence: US)
  Receive Date: 20161103
  Receipt Date: 20191210
  Transmission Date: 20200122
  Serious: No
  Sender: FDA-Public Use
  Company Number: US-UCBSA-2016035148

PATIENT
  Age: 6 Decade
  Sex: Male

DRUGS (3)
  1. DILANTIN [Concomitant]
     Active Substance: PHENYTOIN
     Dosage: 330 MG/DAY DURING BEDTIME ONLY
  2. DILANTIN [Concomitant]
     Active Substance: PHENYTOIN
     Indication: SEIZURE
     Dosage: 130 MORNING +100 MID-DAY+160 BEDTIME, 3X/DAY (TID)
  3. BRIVIACT [Suspect]
     Active Substance: BRIVARACETAM
     Indication: SEIZURE
     Dosage: 100 MG, 2X/DAY (BID)
     Dates: start: 2016, end: 2016

REACTIONS (1)
  - Irritability [Unknown]

NARRATIVE: CASE EVENT DATE: 2016
